FAERS Safety Report 4716736-9 (Version None)
Quarter: 2005Q3

REPORT INFORMATION
  Report Type: 
  Country: None (occurrence: None)
  Receive Date: 20050714
  Receipt Date: 20050308
  Transmission Date: 20060218
  Serious: Yes (Hospitalization)
  Sender: FDA-Public Use
  Company Number: MED000051

PATIENT
  Age: 51 Year
  Sex: Male

DRUGS (1)
  1. HEPARIN SODIUM [Suspect]
     Indication: CORONARY ARTERY SURGERY

REACTIONS (11)
  - ABDOMINAL DISTENSION [None]
  - ADRENAL CORTEX NECROSIS [None]
  - ADRENAL HAEMORRHAGE [None]
  - ANTIBODY TEST POSITIVE [None]
  - HEPARIN-INDUCED THROMBOCYTOPENIA [None]
  - HEPARIN-INDUCED THROMBOCYTOPENIA TEST [None]
  - HYPOTENSION [None]
  - INTESTINAL ISCHAEMIA [None]
  - POST PROCEDURAL COMPLICATION [None]
  - SEPSIS [None]
  - THROMBOCYTOPENIA [None]
